FAERS Safety Report 7340934-1 (Version None)
Quarter: 2011Q1

REPORT INFORMATION
  Report Type: 
  Country: None (occurrence: None)
  Receive Date: 20110309
  Receipt Date: 20100611
  Transmission Date: 20110831
  Serious: No
  Sender: FDA-Public Use
  Company Number: US-ABBOTT-10P-163-0652173-00

PATIENT
  Sex: Female
  Weight: 58.112 kg

DRUGS (2)
  1. LUPRON DEPOT [Suspect]
     Indication: ENDOMETRIOSIS
     Dates: start: 20100401
  2. LUPRON DEPOT [Suspect]
     Indication: OVARIAN CYST

REACTIONS (4)
  - HEADACHE [None]
  - MENORRHAGIA [None]
  - VISION BLURRED [None]
  - EYELID PTOSIS [None]
